FAERS Safety Report 9859460 (Version 3)
Quarter: 2014Q1

REPORT INFORMATION
  Report Type: Spontaneous
  Country: US (occurrence: US)
  Receive Date: 20140131
  Receipt Date: 20140306
  Transmission Date: 20141002
  Serious: Yes (Hospitalization, Other)
  Sender: FDA-Public Use
  Company Number: US-UCBSA-110505

PATIENT
  Age: 64 Year
  Sex: Female
  Weight: 59 kg

DRUGS (7)
  1. VIMPAT [Suspect]
     Indication: CONVULSION
     Dosage: UNKNOWN LOW DOSE
     Dates: start: 2012, end: 2012
  2. VIMPAT [Suspect]
     Indication: CONVULSION
     Dosage: UNKNOWN DOSE INCREASED
     Dates: start: 201209
  3. VIMPAT [Suspect]
     Indication: CONVULSION
     Dates: start: 201310
  4. VIMPAT [Suspect]
     Indication: CONVULSION
     Dates: start: 20140204
  5. LAMICTAL [Suspect]
     Dates: start: 201310, end: 20131015
  6. LAMICTAL [Suspect]
     Dosage: UNKNOWN DOSE
     Dates: end: 20140112
  7. CIPRO [Concomitant]
     Indication: URINARY TRACT INFECTION

REACTIONS (5)
  - Convulsion [Recovered/Resolved]
  - Grand mal convulsion [Recovered/Resolved]
  - Urinary tract infection [Unknown]
  - Somnolence [Unknown]
  - Tremor [Unknown]
